FAERS Safety Report 6694613 (Version 4)
Quarter: 2013Q1

REPORT INFORMATION
  Report Type: Spontaneous
  Country: FR (occurrence: FR)
  Receive Date: 20080709
  Receipt Date: 20130306
  Transmission Date: 20140127
  Serious: Yes (Hospitalization)
  Sender: FDA-Public Use
  Company Number: FR-PFIZER INC-2008055521

PATIENT
  Age: 81 Year
  Sex: 0

DRUGS (6)
  1. TAHOR [Suspect]
     Indication: HYPERCHOLESTEROLAEMIA
     Dosage: 80 MG, 1X/DAY
  2. DEPAKINE [Suspect]
     Indication: EPILEPSY
     Dosage: 500 MG, 2X/DAY
     Route: 048
     Dates: start: 200803, end: 20080403
  3. COVERSYL [Suspect]
     Indication: HYPERTENSION
     Dosage: 4 MG, 1X/DAY
     Route: 048
  4. CHIBRO-PROSCAR [Suspect]
     Indication: PROSTATIC ADENOMA
     Dosage: 5 MG, 1X/DAY
     Route: 048
  5. SKELID [Suspect]
     Dosage: 400 MG, 1X/DAY
  6. KARDEGIC [Suspect]
     Indication: PROPHYLAXIS
     Dosage: 75 MG, 1X/DAY
     Route: 048

REACTIONS (2)
  - Dependence [Not Recovered/Not Resolved]
  - Fall [Recovered/Resolved with Sequelae]
